FAERS Safety Report 16089086 (Version 1)
Quarter: 2019Q1

REPORT INFORMATION
  Report Type: Spontaneous
  Country: US (occurrence: US)
  Receive Date: 20190319
  Receipt Date: 20190319
  Transmission Date: 20190418
  Serious: No
  Sender: FDA-Public Use
  Company Number: US-009507513-1903USA002116

PATIENT
  Sex: Male

DRUGS (1)
  1. ZOCOR [Suspect]
     Active Substance: SIMVASTATIN
     Dosage: 40 MILLIGRAM
     Route: 048
     Dates: start: 2014, end: 2017

REACTIONS (2)
  - Headache [Unknown]
  - Myalgia [Unknown]
